FAERS Safety Report 6185725-2 (Version None)
Quarter: 2009Q2

REPORT INFORMATION
  Report Type: 
  Country: None (occurrence: None)
  Receive Date: 20090511
  Receipt Date: 20090427
  Transmission Date: 20091009
  Serious: Yes (Hospitalization)
  Sender: FDA-Public Use
  Company Number: US-BIOGENIDEC-2008BI032893

PATIENT
  Age: 69 Year
  Sex: Male

DRUGS (1)
  1. TYSABRI [Suspect]
     Indication: MULTIPLE SCLEROSIS
     Route: 042
     Dates: start: 20061004

REACTIONS (8)
  - BACK PAIN [None]
  - BONE DISORDER [None]
  - FALL [None]
  - LOSS OF CONTROL OF LEGS [None]
  - LUMBAR VERTEBRAL FRACTURE [None]
  - MOBILITY DECREASED [None]
  - NERVOUS SYSTEM DISORDER [None]
  - URINARY TRACT INFECTION [None]
